FAERS Safety Report 8301199-7 (Version None)
Quarter: 2012Q2

REPORT INFORMATION
  Report Type: 
  Country: None (occurrence: None)
  Receive Date: 20120420
  Receipt Date: 20120416
  Transmission Date: 20120825
  Serious: Yes (Hospitalization)
  Sender: FDA-Public Use
  Company Number: US-BAYER-2011-123850

PATIENT
  Age: 16 Year
  Sex: Female
  Weight: 61.2 kg

DRUGS (7)
  1. KEPPRA [Concomitant]
     Dosage: 750 MG, HS
     Route: 048
  2. YASMIN [Suspect]
     Indication: PREMENSTRUAL SYNDROME
     Dosage: UNK
     Route: 048
     Dates: start: 20060101, end: 20070101
  3. MECLIZINE [Concomitant]
     Dosage: 25 MG, BID
     Route: 048
  4. SEROQUEL [Concomitant]
     Dosage: 25 MG, HS
     Route: 048
  5. MACROBID [Concomitant]
     Indication: URINARY TRACT INFECTION
     Dosage: UNK UNK, BID
     Route: 048
     Dates: start: 20070125, end: 20070204
  6. ATENOLOL [Concomitant]
     Dosage: 50 MG, QD
     Route: 048
  7. PHENAZOPYRIDINE HCL TAB [Concomitant]
     Indication: URINARY TRACT INFECTION
     Dosage: 100 MG, UNK
     Route: 048

REACTIONS (5)
  - DEEP VEIN THROMBOSIS [None]
  - PAIN [None]
  - EMOTIONAL DISTRESS [None]
  - ANXIETY [None]
  - GENERAL PHYSICAL HEALTH DETERIORATION [None]
